FAERS Safety Report 5217666-9 (Version None)
Quarter: 2007Q1

REPORT INFORMATION
  Report Type: 
  Country: None (occurrence: None)
  Receive Date: 20061130
  Receipt Date: 20060830
  Transmission Date: 20070707
  Serious: Yes (Hospitalization, Other)
  Sender: FDA-Public Use
  Company Number: US200602002461

PATIENT
  Age: 21 Year
  Sex: Female
  Weight: 170.1 kg

DRUGS (15)
  1. ZYPREXA [Suspect]
     Indication: SCHIZOPHRENIA
     Dosage: SEE IMAGE
     Route: 048
     Dates: start: 20040611, end: 20040712
  2. ZYPREXA [Suspect]
     Indication: SCHIZOPHRENIA
     Dosage: SEE IMAGE
     Route: 048
     Dates: end: 20041101
  3. ZYPREXA [Suspect]
     Indication: SCHIZOPHRENIA
     Dosage: SEE IMAGE
     Route: 048
     Dates: start: 20030101
  4. ZYPREXA [Suspect]
     Indication: SCHIZOPHRENIA
     Dosage: SEE IMAGE
     Route: 048
     Dates: start: 20030913
  5. GEODON [Concomitant]
  6. DEPAKOTE [Concomitant]
  7. HALOPERIDOL [Concomitant]
  8. BENZTROPINE MESYLATE [Concomitant]
  9. SEROQUEL [Concomitant]
  10. RISPERDAL /SWE/(RISPERIDONE) [Concomitant]
  11. TEGRETOL [Concomitant]
  12. LITHIUM CARBONATE [Concomitant]
  13. PAXIL [Concomitant]
  14. LOPRESSOR [Concomitant]
  15. LANTUS [Concomitant]

REACTIONS (5)
  - DIABETES MELLITUS NON-INSULIN-DEPENDENT [None]
  - HYPERGLYCAEMIA [None]
  - NAUSEA [None]
  - PRESCRIBED OVERDOSE [None]
  - WEIGHT INCREASED [None]
